FAERS Safety Report 19973856 (Version 1)
Quarter: 2021Q4

REPORT INFORMATION
  Report Type: Spontaneous
  Country: US (occurrence: US)
  Receive Date: 20211020
  Receipt Date: 20211020
  Transmission Date: 20220303
  Serious: No
  Sender: FDA-Public Use
  Company Number: US-GLENMARK PHARMACEUTICALS-2021GMK067315

PATIENT

DRUGS (2)
  1. LIDOCAINE [Suspect]
     Active Substance: LIDOCAINE
     Indication: Arthralgia
     Dosage: UNK
     Route: 061
     Dates: start: 20210804
  2. LIDOCAINE [Suspect]
     Active Substance: LIDOCAINE
     Indication: Pain in extremity

REACTIONS (1)
  - Drug effective for unapproved indication [Unknown]
